FAERS Safety Report 23601451 (Version 1)
Quarter: 2024Q1

REPORT INFORMATION
  Report Type: Spontaneous
  Country: US (occurrence: US)
  Receive Date: 20240306
  Receipt Date: 20240306
  Transmission Date: 20240410
  Serious: No
  Sender: FDA-Public Use
  Company Number: US-INSUD PHARMA-2402US01653

PATIENT

DRUGS (2)
  1. PROGESTERONE [Suspect]
     Active Substance: PROGESTERONE
     Indication: Night sweats
     Dosage: UNKNOWN
     Route: 048
     Dates: start: 202401, end: 202402
  2. PROGESTERONE [Suspect]
     Active Substance: PROGESTERONE
     Indication: Sleep disorder

REACTIONS (6)
  - Loss of therapeutic response [Unknown]
  - Night sweats [Unknown]
  - Insomnia [Unknown]
  - Product substitution issue [Unknown]
  - Product odour abnormal [Unknown]
  - Product use in unapproved indication [Unknown]

NARRATIVE: CASE EVENT DATE: 20240101
